FAERS Safety Report 11684061 (Version 2)
Quarter: 2015Q4

REPORT INFORMATION
  Report Type: Report from Study
  Country: US (occurrence: US)
  Receive Date: 20151029
  Receipt Date: 20151103
  Transmission Date: 20160304
  Serious: Yes (Life-Threatening, Hospitalization, Other)
  Sender: FDA-Public Use
  Company Number: US-ABBVIE-15K-163-1490046-00

PATIENT
  Age: 61 Year
  Sex: Female
  Weight: 58.11 kg

DRUGS (1)
  1. HUMIRA [Suspect]
     Active Substance: ADALIMUMAB
     Indication: RHEUMATOID ARTHRITIS
     Route: 058
     Dates: start: 2010

REACTIONS (14)
  - Drug dose omission [Unknown]
  - Ocular hyperaemia [Not Recovered/Not Resolved]
  - Finger deformity [Unknown]
  - Gingivitis [Not Recovered/Not Resolved]
  - Electrocardiogram abnormal [Not Recovered/Not Resolved]
  - Surgical failure [Recovered/Resolved]
  - Pulmonary mass [Not Recovered/Not Resolved]
  - Synovial cyst [Recovered/Resolved]
  - Procedural complication [Recovering/Resolving]
  - Rheumatoid arthritis [Not Recovered/Not Resolved]
  - Injection site pain [Not Recovered/Not Resolved]
  - Nerve injury [Recovering/Resolving]
  - Tuberculosis [Recovered/Resolved]
  - Device issue [Unknown]

NARRATIVE: CASE EVENT DATE: 2014
